FAERS Safety Report 6087655-3 (Version None)
Quarter: 2009Q1

REPORT INFORMATION
  Report Type: 
  Country: None (occurrence: None)
  Receive Date: 20090223
  Receipt Date: 20090218
  Transmission Date: 20090719
  Serious: Yes (Hospitalization)
  Sender: FDA-Public Use
  Company Number: JP-BRISTOL-MYERS SQUIBB COMPANY-14513709

PATIENT
  Age: 3 Year
  Sex: Female

DRUGS (3)
  1. PARAPLATIN [Suspect]
     Indication: NEUROBLASTOMA
     Dosage: 400 MG/M2/DAY FOR 4 TIMES
     Route: 041
  2. VEPESID [Suspect]
     Indication: NEUROBLASTOMA
     Dosage: 200 MG/M2/DAY FOR 4 TIMES
     Route: 041
  3. ALKERAN [Suspect]
     Indication: NEUROBLASTOMA
     Route: 042

REACTIONS (7)
  - CLOSTRIDIUM DIFFICILE COLITIS [None]
  - CYTOMEGALOVIRUS INFECTION [None]
  - IMMUNODEFICIENCY [None]
  - MUCOUS MEMBRANE DISORDER [None]
  - PERICARDIAL EFFUSION [None]
  - PROTEIN TOTAL DECREASED [None]
  - PROTEIN-LOSING GASTROENTEROPATHY [None]
